FAERS Safety Report 19067939 (Version 1)
Quarter: 2021Q1

REPORT INFORMATION
  Report Type: Spontaneous
  Country: US (occurrence: US)
  Receive Date: 20210326
  Receipt Date: 20210326
  Transmission Date: 20210420
  Serious: Yes (Other)
  Sender: FDA-Public Use
  Company Number: None

PATIENT
  Sex: Male

DRUGS (1)
  1. FEBUXOSTAT 40 MG TABLETS [Suspect]
     Active Substance: FEBUXOSTAT

REACTIONS (2)
  - Hypersensitivity [None]
  - Skin exfoliation [None]
